FAERS Safety Report 10197713 (Version 1)
Quarter: 2014Q2

REPORT INFORMATION
  Report Type: Spontaneous
  Country: US (occurrence: US)
  Receive Date: 20140527
  Receipt Date: 20140527
  Transmission Date: 20141212
  Serious: No
  Sender: FDA-Public Use
  Company Number: US-BRISTOL-MYERS SQUIBB COMPANY-19607035

PATIENT
  Age: 66 Year
  Sex: Male

DRUGS (3)
  1. PRAVACHOL [Suspect]
     Indication: HYPERTRIGLYCERIDAEMIA
     Route: 048
  2. PRAVACHOL [Suspect]
     Indication: HYPERCHOLESTEROLAEMIA
     Route: 048
  3. LEVOTHYROXINE [Concomitant]

REACTIONS (4)
  - Mouth swelling [Unknown]
  - Pruritus generalised [Unknown]
  - Rash [Unknown]
  - Feeling hot [Unknown]
